FAERS Safety Report 13438753 (Version 2)
Quarter: 2017Q2

REPORT INFORMATION
  Report Type: Spontaneous
  Country: UA (occurrence: UA)
  Receive Date: 20170412
  Receipt Date: 20170420
  Transmission Date: 20170830
  Serious: Yes (Other)
  Sender: FDA-Public Use
  Company Number: UA-PFIZER INC-2017157718

PATIENT
  Age: 53 Year
  Sex: Female

DRUGS (2)
  1. ELLEFORE [Suspect]
     Active Substance: DESVENLAFAXINE SUCCINATE
     Indication: DEPRESSION
     Dosage: 50 MG, DAILY
     Route: 048
     Dates: start: 20170217, end: 2017
  2. ELLEFORE [Suspect]
     Active Substance: DESVENLAFAXINE SUCCINATE
     Dosage: 100 MG, DAILY (INCREASED IN TWO WEEKS)
     Route: 048
     Dates: start: 2017, end: 20170331

REACTIONS (3)
  - Nausea [Recovering/Resolving]
  - Dysgeusia [Recovering/Resolving]
  - Rash generalised [Recovering/Resolving]

NARRATIVE: CASE EVENT DATE: 20170308
